FAERS Safety Report 7330655-3 (Version None)
Quarter: 2011Q1

REPORT INFORMATION
  Report Type: 
  Country: None (occurrence: None)
  Receive Date: 20110225
  Receipt Date: 20110225
  Transmission Date: 20110831
  Serious: Yes (Other)
  Sender: FDA-Public Use
  Company Number: None

PATIENT
  Age: 21 Year
  Sex: Male
  Weight: 74.8435 kg

DRUGS (1)
  1. CONTAC [Suspect]
     Indication: NASAL CONGESTION
     Dosage: 1 PILL 1 TIME PO
     Route: 048
     Dates: start: 19700810

REACTIONS (2)
  - PALPITATIONS [None]
  - ANGINA PECTORIS [None]
